FAERS Safety Report 7665561-8 (Version None)
Quarter: 2011Q3

REPORT INFORMATION
  Report Type: 
  Country: None (occurrence: None)
  Receive Date: 20110806
  Receipt Date: 20110519
  Transmission Date: 20111222
  Serious: No
  Sender: FDA-Public Use
  Company Number: US-ABBOTT-11P-163-0727798-00

PATIENT
  Sex: Female
  Weight: 79.45 kg

DRUGS (10)
  1. NIASPAN [Suspect]
     Indication: BLOOD CHOLESTEROL INCREASED
     Route: 048
     Dates: start: 20100101, end: 20110101
  2. ALLEGRA [Concomitant]
     Indication: HYPERSENSITIVITY
  3. ASPIRIN [Concomitant]
     Indication: PRODUCT USED FOR UNKNOWN INDICATION
     Dosage: DAILY DOSE 81 MG
  4. POTASSIUM [Concomitant]
     Indication: MUSCLE SPASMS
  5. OSTEO BI-FLEX [Concomitant]
     Indication: ARTHRITIS
  6. DOXYCYCLINE [Concomitant]
     Indication: GINGIVAL DISORDER
  7. VITAMIN D [Concomitant]
     Indication: VITAMIN SUPPLEMENTATION
  8. NIASPAN [Suspect]
     Route: 048
     Dates: start: 20110401
  9. TYLENOL PM [Concomitant]
     Indication: ARTHRITIS
  10. NIASPAN [Suspect]
     Dosage: DAILY DOSE 1500 MG
     Dates: start: 20110101, end: 20110401

REACTIONS (6)
  - DIARRHOEA [None]
  - FLUSHING [None]
  - HEADACHE [None]
  - INSOMNIA [None]
  - DIZZINESS [None]
  - NAUSEA [None]
